FAERS Safety Report 24276893 (Version 1)
Quarter: 2024Q3

REPORT INFORMATION
  Report Type: Spontaneous
  Country: NO (occurrence: NO)
  Receive Date: 20240903
  Receipt Date: 20240903
  Transmission Date: 20241016
  Serious: Yes (Other)
  Sender: TEVA
  Company Number: None

PATIENT
  Age: 45 Year
  Sex: Female
  Weight: 81 kg

DRUGS (5)
  1. LISDEXAMFETAMINE DIMESYLATE [Suspect]
     Active Substance: LISDEXAMFETAMINE DIMESYLATE
     Indication: Attention deficit hyperactivity disorder
     Dosage: 1
     Route: 048
     Dates: start: 202309, end: 202310
  2. ATORVASTATIN XIROMED [Concomitant]
     Indication: Prophylaxis
     Route: 065
     Dates: start: 2018
  3. CLOPIDOGREL [Concomitant]
     Active Substance: CLOPIDOGREL BISULFATE
     Indication: Cerebrovascular accident
     Dosage: CLOPIDOGREL MEDICAL VALLEY
     Route: 065
     Dates: start: 2019
  4. FLUOXETINE VITABALANS [Concomitant]
     Indication: Depression
     Route: 065
  5. Losartan Hydrochlorothiazide Krka [Concomitant]
     Indication: Hypertension
     Dosage: LOSARTAN/HYDROCHLOROTHIAZIDE KRKA 100 MG/25 MG
     Route: 065
     Dates: start: 2019

REACTIONS (3)
  - Suicidal ideation [Recovered/Resolved]
  - Product substitution issue [Unknown]
  - Depression [Recovered/Resolved]

NARRATIVE: CASE EVENT DATE: 20230901
